FAERS Safety Report 12353093 (Version 1)
Quarter: 2016Q2

REPORT INFORMATION
  Report Type: Spontaneous
  Country: US (occurrence: US)
  Receive Date: 20160510
  Receipt Date: 20160510
  Transmission Date: 20160815
  Serious: Yes (Other)
  Sender: FDA-Public Use
  Company Number: US-ELI_LILLY_AND_COMPANY-US201605000557

PATIENT
  Sex: Female

DRUGS (2)
  1. CYMBALTA [Suspect]
     Active Substance: DULOXETINE HYDROCHLORIDE
     Indication: PAIN
     Dosage: UNK, UNKNOWN
     Route: 065
  2. CYMBALTA [Suspect]
     Active Substance: DULOXETINE HYDROCHLORIDE
     Indication: DEPRESSION

REACTIONS (21)
  - Tremor [Unknown]
  - Paraesthesia [Unknown]
  - Sleep disorder [Unknown]
  - Dizziness [Unknown]
  - Irritability [Unknown]
  - Vomiting [Unknown]
  - Migraine [Unknown]
  - Hyperhidrosis [Unknown]
  - Aggression [Unknown]
  - Headache [Unknown]
  - Drug withdrawal syndrome [Unknown]
  - Disturbance in attention [Unknown]
  - Hallucination [Unknown]
  - Agitation [Unknown]
  - Memory impairment [Unknown]
  - Vertigo [Unknown]
  - Nausea [Unknown]
  - Confusional state [Unknown]
  - Nightmare [Unknown]
  - Sensory disturbance [Unknown]
  - Fatigue [Unknown]
